FAERS Safety Report 16970569 (Version 1)
Quarter: 2019Q4

REPORT INFORMATION
  Report Type: Spontaneous
  Country: PT (occurrence: PT)
  Receive Date: 20191029
  Receipt Date: 20191029
  Transmission Date: 20200122
  Serious: Yes (Hospitalization, Other)
  Sender: FDA-Public Use
  Company Number: PT-AVION PHARMACEUTICALS, LLC-2076136

PATIENT
  Age: 51 Year
  Sex: Female

DRUGS (4)
  1. A COMPOUNDED PREPARATION WHICH CHLORDIAZEPOXIDE [Suspect]
     Active Substance: CHLORDIAZEPOXIDE
     Route: 065
  2. A COMPOUNDED PREPARATION WHICH BUPROPION [Suspect]
     Active Substance: BUPROPION
  3. A COMPOUNDED PREPARATION WHICH TOPIRAMATE [Suspect]
     Active Substance: TOPIRAMATE
  4. BALCOLTRA [Suspect]
     Active Substance: ETHINYL ESTRADIOL\LEVONORGESTREL
     Indication: CONTRACEPTION
     Route: 065

REACTIONS (1)
  - Cerebral venous thrombosis [Unknown]
